FAERS Safety Report 20377410 (Version 5)
Quarter: 2022Q2

REPORT INFORMATION
  Report Type: Other
  Country: KR (occurrence: None)
  Receive Date: 20220126
  Receipt Date: 20220531
  Transmission Date: 20220721
  Serious: Yes (Hospitalization, Other)
  Sender: FDA-Public Use
  Company Number: KR-ROCHE-2961302

PATIENT
  Age: 69 Year
  Sex: Male
  Weight: 60 kg

DRUGS (11)
  1. ATEZOLIZUMAB [Suspect]
     Active Substance: ATEZOLIZUMAB
     Indication: Hepatocellular carcinoma
     Dosage: SUBSEQUENT DOSES ON 20/AUG/2021, 13/SEP/2021, 08/OCT/2021, 01/NOV/2021, 22/NOV/2021, 23/DEC/2021, 03
     Route: 041
     Dates: start: 20210728
  2. BEVACIZUMAB [Suspect]
     Active Substance: BEVACIZUMAB
     Indication: Hepatocellular carcinoma
     Dosage: SUBSEQUENT DOSES ON 20/AUG/2021, 13/SEP/2021, 08/OCT/2021, 22/NOV/2021, 23/DEC/2021, 03/JAN/2022 AND
     Route: 042
     Dates: start: 20210728
  3. AMOSARTAN [Concomitant]
     Indication: Hypertension
     Dosage: 5/50 MG
     Dates: start: 20210718
  4. BARACLUDE [Concomitant]
     Active Substance: ENTECAVIR
     Indication: Hepatitis B
     Dates: start: 2012
  5. NEXIUM [Concomitant]
     Active Substance: ESOMEPRAZOLE MAGNESIUM
     Indication: Gastritis
     Dates: start: 20210719
  6. LAMINA-G [Concomitant]
     Indication: Gastritis
     Dates: start: 20210719
  7. ALDACTONE [Concomitant]
     Active Substance: SPIRONOLACTONE
     Dates: start: 20220103
  8. FURIX (SOUTH KOREA) [Concomitant]
     Dates: start: 20220103
  9. OXYCODONE HYDROCHLORIDE [Concomitant]
     Active Substance: OXYCODONE HYDROCHLORIDE
     Dates: start: 20211122
  10. SUSPEN ER [Concomitant]
     Dates: start: 20210820
  11. PROPACETAMOL HYDROCHLORIDE [Concomitant]
     Active Substance: PROPACETAMOL HYDROCHLORIDE
     Route: 042
     Dates: start: 20220120, end: 20220125

REACTIONS (8)
  - Ascites [Recovering/Resolving]
  - Pyrexia [Recovered/Resolved]
  - Proteinuria [Recovering/Resolving]
  - Hypoalbuminaemia [Recovering/Resolving]
  - Hypothyroidism [Recovering/Resolving]
  - Nausea [Recovering/Resolving]
  - Constipation [Recovering/Resolving]
  - Cough [Recovering/Resolving]

NARRATIVE: CASE EVENT DATE: 20211008
